FAERS Safety Report 15701217 (Version 2)
Quarter: 2019Q1

REPORT INFORMATION
  Report Type: Report from Study
  Country: US (occurrence: US)
  Receive Date: 20181207
  Receipt Date: 20190111
  Transmission Date: 20190417
  Serious: Yes (Other)
  Sender: FDA-Public Use
  Company Number: US-BIOGEN-2018BI00667444

PATIENT
  Sex: Female

DRUGS (2)
  1. TYSABRI [Suspect]
     Active Substance: NATALIZUMAB
     Indication: MULTIPLE SCLEROSIS
     Dosage: INFUSED OVER 1 HOUR
     Route: 065
     Dates: start: 20140923, end: 20170720
  2. TYSABRI [Suspect]
     Active Substance: NATALIZUMAB
     Dosage: RECENTLY RESTARTED TYSABRI
     Route: 065

REACTIONS (6)
  - Vertigo [Unknown]
  - Blindness transient [Recovered/Resolved]
  - Multiple sclerosis relapse [Unknown]
  - Peroneal nerve palsy [Unknown]
  - Hemianaesthesia [Unknown]
  - Hypersomnia [Unknown]
